FAERS Safety Report 19580096 (Version 1)
Quarter: 2021Q3

REPORT INFORMATION
  Report Type: Spontaneous
  Country: US (occurrence: US)
  Receive Date: 20210719
  Receipt Date: 20210719
  Transmission Date: 20211014
  Serious: No
  Sender: FDA-Public Use
  Company Number: US-DSJP-DSU-2021-122248

PATIENT
  Sex: Male

DRUGS (1)
  1. TURALIO [Suspect]
     Active Substance: PEXIDARTINIB HYDROCHLORIDE
     Indication: MALIGNANT HISTIOCYTOSIS
     Dosage: UNK
     Route: 065

REACTIONS (2)
  - Product prescribing error [Not Recovered/Not Resolved]
  - No adverse event [Not Recovered/Not Resolved]
